FAERS Safety Report 7775581-0 (Version None)
Quarter: 2011Q3

REPORT INFORMATION
  Report Type: 
  Country: None (occurrence: None)
  Receive Date: 20110923
  Receipt Date: 20110916
  Transmission Date: 20111222
  Serious: Yes (Other)
  Sender: FDA-Public Use
  Company Number: JP-CEPHALON-2011005062

PATIENT
  Sex: Male
  Weight: 44 kg

DRUGS (4)
  1. FEXOFENADINE HYDROCHLORIDE [Concomitant]
     Dates: start: 20110623
  2. OLOPATADINE HYDROCHLORIDE [Concomitant]
     Dates: start: 20110824
  3. TREANDA [Suspect]
     Indication: DIFFUSE LARGE B-CELL LYMPHOMA REFRACTORY
     Route: 041
     Dates: start: 20100803, end: 20101118
  4. LEVOTHYROXINE SODIUM [Concomitant]

REACTIONS (1)
  - ACUTE MYELOID LEUKAEMIA [None]
